FAERS Safety Report 7867365-X (Version None)
Quarter: 2011Q4

REPORT INFORMATION
  Report Type: 
  Country: None (occurrence: None)
  Receive Date: 20111028
  Receipt Date: 20111020
  Transmission Date: 20120403
  Serious: Yes (Hospitalization)
  Sender: FDA-Public Use
  Company Number: CA-BRISTOL-MYERS SQUIBB COMPANY-16202152

PATIENT
  Age: 49 Year
  Sex: Male
  Weight: 38 kg

DRUGS (3)
  1. FLUOROURACIL [Suspect]
     Indication: HEAD AND NECK CANCER
     Dosage: LAST DOSE:11AUG11
     Route: 042
     Dates: start: 20110526
  2. CISPLATIN [Suspect]
     Indication: HEAD AND NECK CANCER
     Dosage: LAST DOSE:11AUG11
     Route: 042
     Dates: start: 20110526, end: 20110811
  3. CETUXIMAB [Suspect]
     Indication: HEAD AND NECK CANCER
     Dosage: 250MG/M2 DAY 1,8,15. 16JUN11 400MG/M2 DAY1 OF CYCLE1.
     Route: 042
     Dates: start: 20110526, end: 20110526

REACTIONS (1)
  - ANAEMIA [None]
